FAERS Safety Report 8800087 (Version 2)
Quarter: 2015Q2

REPORT INFORMATION
  Report Type: Report from Study
  Country: US (occurrence: US)
  Receive Date: 20120921
  Receipt Date: 20150622
  Transmission Date: 20150821
  Serious: Yes (Death)
  Sender: FDA-Public Use
  Company Number: US-ROCHE-1126071

PATIENT
  Sex: Female

DRUGS (15)
  1. AVASTIN [Suspect]
     Active Substance: BEVACIZUMAB
     Route: 042
     Dates: start: 20051219
  2. PEGFILGRASTIM [Concomitant]
     Active Substance: PEGFILGRASTIM
     Route: 058
  3. HEPARIN [Concomitant]
     Active Substance: HEPARIN SODIUM
  4. VINORELBINE [Concomitant]
     Active Substance: VINORELBINE\VINORELBINE TARTRATE
     Route: 048
  5. AVASTIN [Suspect]
     Active Substance: BEVACIZUMAB
     Indication: BREAST CANCER FEMALE
     Route: 042
     Dates: start: 20050603
  6. VANCOMYCIN [Concomitant]
     Active Substance: VANCOMYCIN
     Route: 065
  7. ABRAXANE [Concomitant]
     Active Substance: PACLITAXEL
     Route: 042
  8. TYLENOL [Concomitant]
     Active Substance: ACETAMINOPHEN
     Route: 048
  9. ABRAXANE [Concomitant]
     Active Substance: PACLITAXEL
     Route: 042
  10. CEFTRIAXONE. [Concomitant]
     Active Substance: CEFTRIAXONE
  11. TAXOL [Concomitant]
     Active Substance: PACLITAXEL
     Route: 065
  12. ONDANSETRON [Concomitant]
     Active Substance: ONDANSETRON
     Route: 042
  13. ABRAXANE [Concomitant]
     Active Substance: PACLITAXEL
     Route: 042
  14. DARBEPOETIN ALFA [Concomitant]
     Active Substance: DARBEPOETIN ALFA
     Route: 058
  15. DILAUDID [Concomitant]
     Active Substance: HYDROMORPHONE HYDROCHLORIDE

REACTIONS (6)
  - Off label use [Unknown]
  - Death [Fatal]
  - Pain [Unknown]
  - Swelling [Unknown]
  - Discomfort [Unknown]
  - Musculoskeletal pain [Unknown]
